FAERS Safety Report 11717859 (Version 2)
Quarter: 2015Q4

REPORT INFORMATION
  Report Type: Spontaneous
  Country: CH (occurrence: CH)
  Receive Date: 20151110
  Receipt Date: 20151116
  Transmission Date: 20160304
  Serious: Yes (Hospitalization, Other)
  Sender: FDA-Public Use
  Company Number: CH-AMGEN-CHESP2015117733

PATIENT
  Age: 77 Year
  Sex: Male
  Weight: 86 kg

DRUGS (3)
  1. SPIRICORT [Concomitant]
     Active Substance: PREDNISOLONE
     Indication: PROSTATE CANCER
     Dosage: 5 MG, BID
     Dates: start: 20140314, end: 20150703
  2. XGEVA [Suspect]
     Active Substance: DENOSUMAB
     Indication: METASTASES TO BONE
     Dosage: 120 MG, Q4WK
     Route: 058
     Dates: start: 20140214, end: 20140711
  3. ZYTIGA [Concomitant]
     Active Substance: ABIRATERONE ACETATE
     Indication: PROSTATE CANCER
     Dosage: 250 MG, QD
     Route: 048
     Dates: start: 20140314, end: 20150703

REACTIONS (3)
  - Osteomyelitis [Recovered/Resolved]
  - Osteonecrosis of jaw [Unknown]
  - Tooth extraction [Unknown]

NARRATIVE: CASE EVENT DATE: 20141118
